FAERS Safety Report 4500685-5 (Version None)
Quarter: 2004Q4

REPORT INFORMATION
  Report Type: 
  Country: None (occurrence: None)
  Receive Date: 20041109
  Receipt Date: 20041022
  Transmission Date: 20050328
  Serious: Yes (Other)
  Sender: FDA-Public Use
  Company Number: USA040259452

PATIENT
  Age: 61 Year
  Sex: Female
  Weight: 75 kg

DRUGS (17)
  1. FORTEO [Suspect]
     Indication: OSTEOPOROSIS
     Dates: start: 20031101
  2. LIPITOR [Concomitant]
  3. PREMARIN [Concomitant]
  4. CALCIUM [Concomitant]
  5. VITAMIN D [Concomitant]
  6. NEURONTIN (GABAPENTIN PFIZER) [Concomitant]
  7. ELAVIL [Concomitant]
  8. BEXTRA [Concomitant]
  9. XANAX (ALPRAZOLAM DUM) [Concomitant]
  10. SOMA [Concomitant]
  11. ATENOLOL [Concomitant]
  12. NEXIUM [Concomitant]
  13. ZETIA [Concomitant]
  14. ACTONEL [Concomitant]
  15. MIACALCIN [Concomitant]
  16. MULTI-VITAMINS [Concomitant]
  17. SUPPLEMENTS [Concomitant]

REACTIONS (3)
  - ACETABULUM FRACTURE [None]
  - ACTIVITIES OF DAILY LIVING IMPAIRED [None]
  - IMPAIRED WORK ABILITY [None]
